FAERS Safety Report 7427979-8 (Version None)
Quarter: 2011Q2

REPORT INFORMATION
  Report Type: 
  Country: None (occurrence: None)
  Receive Date: 20110413
  Receipt Date: 20110405
  Transmission Date: 20111010
  Serious: Yes (Other)
  Sender: FDA-Public Use
  Company Number: 2011SP015629

PATIENT
  Age: 29 Year
  Sex: Female
  Weight: 58 kg

DRUGS (4)
  1. NUVARING [Suspect]
     Indication: CONTRACEPTION
     Dosage: ; QM; VAG
     Route: 067
     Dates: start: 20100301
  2. MOMETASONE FUROATE [Concomitant]
  3. DESLORATADINE [Concomitant]
  4. CINNARIZINE [Concomitant]

REACTIONS (2)
  - HYPERINSULINISM [None]
  - INAPPROPRIATE SCHEDULE OF DRUG ADMINISTRATION [None]
